FAERS Safety Report 22273153 (Version 1)
Quarter: 2023Q2

REPORT INFORMATION
  Report Type: Spontaneous
  Country: IT (occurrence: IT)
  Receive Date: 20230502
  Receipt Date: 20230502
  Transmission Date: 20230721
  Serious: Yes (Other)
  Sender: FDA-Public Use
  Company Number: IT-ELI_LILLY_AND_COMPANY-IT202304003369

PATIENT
  Age: 74 Year
  Sex: Male

DRUGS (11)
  1. PEMETREXED DIARGININE [Suspect]
     Active Substance: PEMETREXED DIARGININE
     Indication: Pleural mesothelioma
     Dosage: 500MG/MQ, CYCLICAL (EVERY 21 DAYS)
     Route: 065
     Dates: start: 20230123, end: 20230213
  2. CARBOPLATIN [Suspect]
     Active Substance: CARBOPLATIN
     Indication: Pleural mesothelioma
     Dosage: UNK UNK, CYCLICAL (AUC 4, EVERY 21 DAYS)
     Route: 065
     Dates: start: 20230123, end: 20230213
  3. FOLIC ACID [Concomitant]
     Active Substance: FOLIC ACID
     Indication: Product used for unknown indication
     Dosage: 2 DOSAGE FORM, DAILY
     Route: 065
  4. BROMAZEPAM [Concomitant]
     Active Substance: BROMAZEPAM
     Indication: Product used for unknown indication
     Dosage: 10 GTT DROPS (10 [DRP], PRN (IN EVENING))
     Route: 065
  5. PAROXETINE [Concomitant]
     Active Substance: PAROXETINE
     Indication: Product used for unknown indication
     Dosage: 0.5 DOSAGE FORM, UNKNOWN
     Route: 065
  6. PAROXETINE [Concomitant]
     Active Substance: PAROXETINE
     Dosage: 1 DOSAGE FORM, UNKNOWN
     Route: 065
  7. PANTOPRAZOLE [Concomitant]
     Active Substance: PANTOPRAZOLE
     Indication: Product used for unknown indication
     Dosage: 1 DOSAGE FORM, EACH MORNING
     Route: 065
  8. SOTALOL [Concomitant]
     Active Substance: SOTALOL
     Indication: Product used for unknown indication
     Dosage: 1 DOSAGE FORM, UNKNOWN
     Route: 065
  9. SOTALOL [Concomitant]
     Active Substance: SOTALOL
     Dosage: 0.5 DOSAGE FORM, UNKNOWN
     Route: 065
  10. SOTALOL [Concomitant]
     Active Substance: SOTALOL
     Dosage: 0.5 DOSAGE FORM, UNKNOWN
     Route: 065
  11. SOLIFENACIN [Concomitant]
     Active Substance: SOLIFENACIN
     Indication: Product used for unknown indication
     Dosage: 1 DOSAGE FORM, DAILY
     Route: 065

REACTIONS (4)
  - Malignant neoplasm progression [Unknown]
  - Asthenia [Unknown]
  - Soft tissue inflammation [Unknown]
  - Nocturia [Unknown]

NARRATIVE: CASE EVENT DATE: 20230306
